FAERS Safety Report 13739037 (Version 1)
Quarter: 2017Q3

REPORT INFORMATION
  Report Type: Spontaneous
  Country: US (occurrence: US)
  Receive Date: 20170710
  Receipt Date: 20170710
  Transmission Date: 20171127
  Serious: Yes (Hospitalization, Other)
  Sender: FDA-Public Use
  Company Number: US-SAOL THERAPEUTICS-2017SAO00553

PATIENT
  Age: 42 Year
  Sex: Female

DRUGS (8)
  1. LIORESAL [Suspect]
     Active Substance: BACLOFEN
     Indication: MULTIPLE SCLEROSIS
     Dosage: 510 ?G, \DAY
  2. BACLOFEN. [Suspect]
     Active Substance: BACLOFEN
     Indication: MUSCLE SPASTICITY
     Route: 037
  3. LIORESAL [Suspect]
     Active Substance: BACLOFEN
     Dosage: 589.7 UNK, \DAY
  4. GABLOFEN [Suspect]
     Active Substance: BACLOFEN
  5. HYDROMORPHONE [Suspect]
     Active Substance: HYDROMORPHONE
     Route: 037
  6. BACLOFEN. [Suspect]
     Active Substance: BACLOFEN
     Indication: MULTIPLE SCLEROSIS
  7. LIORESAL [Suspect]
     Active Substance: BACLOFEN
     Dosage: 645.9 ?G, \DAY
     Dates: start: 20120227
  8. LIORESAL [Suspect]
     Active Substance: BACLOFEN
     Indication: MUSCLE SPASTICITY
     Dosage: 1020 ?G, \DAY
     Route: 037

REACTIONS (7)
  - Constipation [Recovering/Resolving]
  - Affect lability [Unknown]
  - Feeling abnormal [Unknown]
  - Complication associated with device [Unknown]
  - Muscle spasms [Unknown]
  - Gastritis [Unknown]
  - Therapeutic response decreased [Unknown]

NARRATIVE: CASE EVENT DATE: 20031216
